FAERS Safety Report 4762084-0 (Version None)
Quarter: 2005Q3

REPORT INFORMATION
  Report Type: 
  Country: None (occurrence: None)
  Receive Date: 20050831
  Receipt Date: 20050617
  Transmission Date: 20060218
  Serious: No
  Sender: FDA-Public Use
  Company Number: PHEH2005US06970

PATIENT
  Age: 81 Year
  Sex: Female

DRUGS (5)
  1. ENABLEX [Suspect]
     Indication: POLLAKIURIA
     Dates: start: 20040301
  2. PREVACID [Concomitant]
  3. HYZAAR [Concomitant]
  4. SYNTHROID [Concomitant]
  5. PRAVACHOL [Concomitant]

REACTIONS (1)
  - DRUG INEFFECTIVE [None]
